FAERS Safety Report 8578167-3 (Version None)
Quarter: 2012Q3

REPORT INFORMATION
  Report Type: 
  Country: None (occurrence: None)
  Receive Date: 20120808
  Receipt Date: 20120801
  Transmission Date: 20120928
  Serious: No
  Sender: FDA-Public Use
  Company Number: US-PFIZER INC-2012187988

PATIENT
  Age: 86 Year
  Sex: Female

DRUGS (2)
  1. FENTANYL [Suspect]
     Dosage: UNK
  2. LYRICA [Suspect]
     Dosage: 50 MG, QHS

REACTIONS (2)
  - PAIN [None]
  - INADEQUATE ANALGESIA [None]
